FAERS Safety Report 25147614 (Version 1)
Quarter: 2025Q2

REPORT INFORMATION
  Report Type: Report from Study
  Country: US (occurrence: US)
  Receive Date: 20250402
  Receipt Date: 20250402
  Transmission Date: 20250717
  Serious: Yes (Other)
  Sender: BAUSCH AND LOMB
  Company Number: US-BAUSCHBL-2025BNL005302

PATIENT
  Age: 72 Year
  Sex: Female

DRUGS (1)
  1. MIEBO [Suspect]
     Active Substance: PERFLUOROHEXYLOCTANE
     Indication: Product used for unknown indication
     Dosage: INSTILL 1 DROP INTO EACH EYE 4 TIMES DAILY. MUST SEE PACKAGE INSERT FOR ADMIN INSTRUCTIONS
     Route: 047
     Dates: start: 20250203, end: 20250324

REACTIONS (4)
  - Eye haemorrhage [Unknown]
  - Eye pruritus [Unknown]
  - Eye irritation [Unknown]
  - Ocular icterus [Unknown]

NARRATIVE: CASE EVENT DATE: 20250101
